FAERS Safety Report 9375616 (Version 1)
Quarter: 2013Q2

REPORT INFORMATION
  Report Type: Spontaneous
  Country: FR (occurrence: FR)
  Receive Date: 20130628
  Receipt Date: 20130628
  Transmission Date: 20140414
  Serious: Yes (Hospitalization, Other)
  Sender: FDA-Public Use
  Company Number: FR-ASTRAZENECA-2013SE48491

PATIENT
  Sex: Male

DRUGS (2)
  1. XEROQUEL [Suspect]
     Indication: BIPOLAR DISORDER
     Route: 048
  2. XEROQUEL [Suspect]
     Indication: BIPOLAR DISORDER
     Route: 048

REACTIONS (5)
  - Hepatocellular injury [Recovering/Resolving]
  - Psychotic disorder [Unknown]
  - Agitation [Unknown]
  - Dehydration [Unknown]
  - Intentional drug misuse [Unknown]
